FAERS Safety Report 11803497 (Version 1)
Quarter: 2015Q4

REPORT INFORMATION
  Report Type: Spontaneous
  Country: CA (occurrence: CA)
  Receive Date: 20151204
  Receipt Date: 20151204
  Transmission Date: 20160305
  Serious: Yes (Other)
  Sender: FDA-Public Use
  Company Number: CA-TEVA-614067ACC

PATIENT
  Age: 30 Year
  Sex: Female

DRUGS (1)
  1. FLUOXETINE [Suspect]
     Active Substance: FLUOXETINE HYDROCHLORIDE
     Indication: ANXIETY
     Dosage: 20 MILLIGRAM DAILY;
     Route: 065

REACTIONS (8)
  - Anxiety [Unknown]
  - Chest pain [Unknown]
  - Suicidal ideation [Unknown]
  - Restlessness [Unknown]
  - Insomnia [Unknown]
  - Dizziness [Unknown]
  - Agitation [Unknown]
  - Thinking abnormal [Unknown]
